FAERS Safety Report 17659539 (Version 1)
Quarter: 2020Q2

REPORT INFORMATION
  Report Type: Report from Study
  Country: US (occurrence: US)
  Receive Date: 20200413
  Receipt Date: 20200413
  Transmission Date: 20200713
  Serious: Yes (Hospitalization)
  Sender: FDA-Public Use
  Company Number: US-ROCHE-2577223

PATIENT
  Age: 67 Year
  Sex: Female
  Weight: 70.37 kg

DRUGS (1)
  1. OCREVUS [Suspect]
     Active Substance: OCRELIZUMAB
     Indication: MULTIPLE SCLEROSIS
     Dosage: NO
     Route: 042
     Dates: start: 201911, end: 201912

REACTIONS (7)
  - Vomiting [Unknown]
  - Herpes virus infection [Unknown]
  - Muscular weakness [Unknown]
  - Dehydration [Unknown]
  - Asthenia [Unknown]
  - Malaise [Unknown]
  - Urinary tract infection [Unknown]

NARRATIVE: CASE EVENT DATE: 201912
